FAERS Safety Report 5823582-1 (Version None)
Quarter: 2008Q3

REPORT INFORMATION
  Report Type: 
  Country: None (occurrence: None)
  Receive Date: 20080725
  Receipt Date: 20080713
  Transmission Date: 20090109
  Serious: Yes (Hospitalization, Other)
  Sender: FDA-Public Use
  Company Number: US-PFIZER INC-2007077977

PATIENT
  Sex: Female
  Weight: 57.6 kg

DRUGS (16)
  1. CHANTIX [Suspect]
     Indication: SMOKING CESSATION THERAPY
     Route: 048
  2. PROTONIX [Concomitant]
  3. ACCOLATE [Concomitant]
  4. ADVAIR DISKUS 100/50 [Concomitant]
  5. ALBUTEROL [Concomitant]
  6. ALLEGRA [Concomitant]
  7. MUCINEX [Concomitant]
  8. LEXAPRO [Concomitant]
  9. CALCIUM [Concomitant]
  10. TETRACYCLINE [Concomitant]
  11. DEPAKOTE [Concomitant]
  12. CELLCEPT [Concomitant]
  13. SPIRIVA [Concomitant]
  14. RHINOCORT [Concomitant]
  15. CROMOLYN SODIUM [Concomitant]
  16. PULMICORT-100 [Concomitant]

REACTIONS (11)
  - BRONCHITIS [None]
  - DEMENTIA ALZHEIMER'S TYPE [None]
  - DIARRHOEA [None]
  - FALL [None]
  - GASTRITIS [None]
  - HAEMORRHOIDS [None]
  - MEMORY IMPAIRMENT [None]
  - NAUSEA [None]
  - PNEUMONIA [None]
  - SINUSITIS [None]
  - UPPER LIMB FRACTURE [None]
